FAERS Safety Report 5541792-8 (Version None)
Quarter: 2007Q4

REPORT INFORMATION
  Report Type: 
  Country: None (occurrence: None)
  Receive Date: 20071210
  Receipt Date: 20071128
  Transmission Date: 20080405
  Serious: Yes (Life-Threatening, Hospitalization)
  Sender: FDA-Public Use
  Company Number: B0498690A

PATIENT
  Age: 55 Year
  Sex: Female

DRUGS (7)
  1. AUGMENTIN '125' [Suspect]
     Indication: LUNG DISORDER
     Dosage: 1G PER DAY
     Route: 042
     Dates: start: 20070908, end: 20070908
  2. COVERSYL [Concomitant]
     Dosage: 2MG UNKNOWN
     Route: 048
     Dates: start: 20070907
  3. HAVLANE [Concomitant]
     Dosage: 40TAB PER DAY
     Route: 048
     Dates: start: 20070907
  4. TRANXENE [Concomitant]
     Dosage: 10TAB PER DAY
     Route: 048
     Dates: start: 20070907
  5. VALIUM [Concomitant]
     Dosage: 5MG UNKNOWN
     Route: 048
     Dates: start: 20070907
  6. APAROXAL [Concomitant]
     Dosage: 20TAB PER DAY
     Route: 048
     Dates: start: 20070907
  7. IRBESARTAN [Concomitant]
     Route: 048
     Dates: start: 20070907

REACTIONS (6)
  - ARRHYTHMIA [None]
  - ARTERIOSPASM CORONARY [None]
  - ELECTROCARDIOGRAM ST SEGMENT DEPRESSION [None]
  - ELECTROMECHANICAL DISSOCIATION [None]
  - GENERAL PHYSICAL HEALTH DETERIORATION [None]
  - MYOCARDIAL ISCHAEMIA [None]
